FAERS Safety Report 4838960-7 (Version None)
Quarter: 2005Q4

REPORT INFORMATION
  Report Type: 
  Country: None (occurrence: None)
  Receive Date: 20051129
  Receipt Date: 20051110
  Transmission Date: 20060501
  Serious: Yes (Hospitalization)
  Sender: FDA-Public Use
  Company Number: 2005SE06488

PATIENT
  Age: 23661 Day
  Sex: Male
  Weight: 47 kg

DRUGS (5)
  1. BLOPRESS [Suspect]
     Indication: HYPERTENSION
     Route: 048
     Dates: start: 20051022, end: 20051026
  2. VITAMEDIN [Concomitant]
     Route: 048
     Dates: start: 20051023
  3. PHENOBAL [Concomitant]
     Indication: CONVULSION
     Route: 030
     Dates: start: 20051021, end: 20051023
  4. SOLUTIONS FOR PARENTERAL NUTRITION [Concomitant]
     Indication: ALCOHOLIC LIVER DISEASE
     Route: 041
     Dates: start: 20051020, end: 20051027
  5. VITAMINS [Concomitant]
     Indication: ALCOHOLIC LIVER DISEASE
     Route: 041
     Dates: start: 20051020

REACTIONS (8)
  - ALCOHOL WITHDRAWAL SYNDROME [None]
  - ALCOHOLISM [None]
  - BLOOD LACTATE DEHYDROGENASE INCREASED [None]
  - CONVULSION [None]
  - HEPATIC FUNCTION ABNORMAL [None]
  - HYPERTENSION [None]
  - INSOMNIA [None]
  - RHABDOMYOLYSIS [None]
